FAERS Safety Report 23109795 (Version 3)
Quarter: 2023Q4

REPORT INFORMATION
  Report Type: Spontaneous
  Country: AR (occurrence: AR)
  Receive Date: 20231026
  Receipt Date: 20231115
  Transmission Date: 20240110
  Serious: Yes (Hospitalization, Other)
  Sender: FDA-Public Use
  Company Number: AR-PFIZER INC-PV202300169785

PATIENT
  Age: 70 Year
  Sex: Male

DRUGS (7)
  1. PIPERACILLIN SODIUM\TAZOBACTAM SODIUM [Suspect]
     Active Substance: PIPERACILLIN SODIUM\TAZOBACTAM SODIUM
     Indication: Pseudomonal bacteraemia
     Dosage: 4.5 MG, 4X/DAY (EVERY 6 HOURS)
     Route: 042
     Dates: start: 2021, end: 2021
  2. CARMUSTINE [Concomitant]
     Active Substance: CARMUSTINE
     Indication: Angioimmunoblastic T-cell lymphoma stage III
     Dosage: UNK
     Dates: start: 202108
  3. CARMUSTINE [Concomitant]
     Active Substance: CARMUSTINE
     Indication: Non-Hodgkin^s lymphoma stage III
  4. ETOPOSIDE [Concomitant]
     Active Substance: ETOPOSIDE
     Indication: Angioimmunoblastic T-cell lymphoma stage III
     Dosage: UNK
     Dates: start: 202108
  5. ETOPOSIDE [Concomitant]
     Active Substance: ETOPOSIDE
     Indication: Non-Hodgkin^s lymphoma stage III
  6. CYCLOPHOSPHAMIDE [Concomitant]
     Active Substance: CYCLOPHOSPHAMIDE
     Indication: Angioimmunoblastic T-cell lymphoma stage III
     Dosage: UNK
     Dates: start: 202108
  7. CYCLOPHOSPHAMIDE [Concomitant]
     Active Substance: CYCLOPHOSPHAMIDE
     Indication: Non-Hodgkin^s lymphoma stage III

REACTIONS (1)
  - Symmetrical drug-related intertriginous and flexural exanthema [Recovered/Resolved]

NARRATIVE: CASE EVENT DATE: 20210101
